FAERS Safety Report 23961400 (Version 2)
Quarter: 2024Q3

REPORT INFORMATION
  Report Type: Report from Study
  Country: US (occurrence: US)
  Receive Date: 20240611
  Receipt Date: 20240731
  Transmission Date: 20241017
  Serious: Yes (Other)
  Sender: SERVIER
  Company Number: US-SERVIER-S24006960

PATIENT

DRUGS (4)
  1. TIBSOVO [Suspect]
     Active Substance: IVOSIDENIB
     Indication: Acute myeloid leukaemia
     Dosage: 500 MG, QD
     Route: 048
     Dates: start: 20240509, end: 2024
  2. TIBSOVO [Suspect]
     Active Substance: IVOSIDENIB
     Dosage: 500 MG, QD
     Route: 048
  3. TIBSOVO [Suspect]
     Active Substance: IVOSIDENIB
     Dosage: 500 MG, QD
     Route: 048
  4. INQOVI [Suspect]
     Active Substance: CEDAZURIDINE\DECITABINE
     Indication: Acute myeloid leukaemia
     Dosage: 100 MG, QD
     Route: 048
     Dates: start: 20240514, end: 2024

REACTIONS (5)
  - Differentiation syndrome [Recovered/Resolved]
  - Haemoglobin decreased [Recovering/Resolving]
  - Neutrophil count decreased [Recovering/Resolving]
  - Blood glucose increased [Unknown]
  - Liver function test increased [Unknown]

NARRATIVE: CASE EVENT DATE: 20240101
